FAERS Safety Report 20620009 (Version 2)
Quarter: 2022Q1

REPORT INFORMATION
  Report Type: Spontaneous
  Country: US (occurrence: US)
  Receive Date: 20220322
  Receipt Date: 20220322
  Transmission Date: 20220423
  Serious: Yes (Death, Other)
  Sender: FDA-Public Use
  Company Number: US-RECORDATI RARE DISEASE INC.-2022000910

PATIENT
  Age: 53 Year
  Sex: Female

DRUGS (1)
  1. METHAMPHETAMINE [Suspect]
     Active Substance: METHAMPHETAMINE
     Indication: Product used for unknown indication
     Route: 065

REACTIONS (11)
  - Myocardial infarction [Fatal]
  - Ventricle rupture [Fatal]
  - Pericardial haemorrhage [Fatal]
  - Pericardial effusion [Fatal]
  - Cardiac arrest [Fatal]
  - Pulmonary oedema [None]
  - Pleural effusion [None]
  - Nausea [Unknown]
  - Dyspnoea [Unknown]
  - Orthopnoea [Unknown]
  - Off label use [Unknown]
